FAERS Safety Report 5332531-4 (Version None)
Quarter: 2007Q2

REPORT INFORMATION
  Report Type: 
  Country: None (occurrence: None)
  Receive Date: 20070521
  Receipt Date: 20070507
  Transmission Date: 20071010
  Serious: Yes (Death, Hospitalization)
  Sender: FDA-Public Use
  Company Number: 2007P1000106

PATIENT
  Age: 59 Year
  Sex: Male

DRUGS (3)
  1. BUSULFAN (BUSULFAN) [Suspect]
     Indication: STEM CELL TRANSPLANT
     Dosage: IV
     Route: 042
  2. CYCLOPHOSPHAMIDE [Concomitant]
  3. HEPARIN [Concomitant]

REACTIONS (37)
  - ANOREXIA [None]
  - ANTIBODY TEST POSITIVE [None]
  - BLOOD PRESSURE DECREASED [None]
  - CAPILLARY LEAK SYNDROME [None]
  - CARDIAC ARREST [None]
  - CARDIAC FAILURE [None]
  - CROSSMATCH INCOMPATIBLE [None]
  - DISSEMINATED INTRAVASCULAR COAGULATION [None]
  - DRUG TOXICITY [None]
  - FLUID RETENTION [None]
  - GASTROENTERITIS STAPHYLOCOCCAL [None]
  - GASTROINTESTINAL HAEMORRHAGE [None]
  - GENERALISED OEDEMA [None]
  - HAEMOLYSIS [None]
  - HEART RATE DECREASED [None]
  - HYPOXIA [None]
  - INFECTION [None]
  - JAUNDICE [None]
  - MALAISE [None]
  - MELAENA [None]
  - MULTI-ORGAN FAILURE [None]
  - NAUSEA [None]
  - NO THERAPEUTIC RESPONSE [None]
  - OEDEMA MOUTH [None]
  - ORAL MUCOSAL DISORDER [None]
  - PATHOGEN RESISTANCE [None]
  - PROCEDURAL COMPLICATION [None]
  - PROCEDURAL VOMITING [None]
  - PULMONARY CONGESTION [None]
  - PULMONARY MICROEMBOLI [None]
  - PULMONARY OEDEMA [None]
  - RENAL FAILURE [None]
  - RENAL IMPAIRMENT [None]
  - SEPSIS [None]
  - STAPHYLOCOCCAL SEPSIS [None]
  - STEM CELL TRANSPLANT [None]
  - STOMATITIS [None]
